FAERS Safety Report 17518236 (Version 2)
Quarter: 2020Q1

REPORT INFORMATION
  Report Type: Spontaneous
  Country: US (occurrence: US)
  Receive Date: 20200309
  Receipt Date: 20200316
  Transmission Date: 20200409
  Serious: Yes (Hospitalization, Other)
  Sender: FDA-Public Use
  Company Number: US-INDIVIOR US-INDV-123884-2020

PATIENT
  Age: 26 Year
  Sex: Male
  Weight: 115 kg

DRUGS (24)
  1. MELATONIN [Concomitant]
     Active Substance: MELATONIN
     Indication: PRODUCT USED FOR UNKNOWN INDICATION
     Dosage: 5 MG QHS PRN
     Route: 065
  2. EPINEPHRINE W/LIDOCAINE [Concomitant]
     Active Substance: EPINEPHRINE\LIDOCAINE
     Indication: PERIOPERATIVE ANALGESIA
     Dosage: 3 ML OF 1.5% LIDOCAINE WITH 1:200,000 EPINEPHRINE
     Route: 008
  3. ROPIVACAINE. [Concomitant]
     Active Substance: ROPIVACAINE HYDROCHLORIDE
     Indication: PERIOPERATIVE ANALGESIA
     Dosage: 0.2% ROPIVACAINE WAS INITIATED AT 1 ML/HOUR
     Route: 008
  4. KETAMINE [Concomitant]
     Active Substance: KETAMINE
     Indication: PROCEDURAL PAIN
     Dosage: (0.25 MCG/KG/HR) POST OPERATIVELY
     Route: 008
  5. GABAPENTIN. [Concomitant]
     Active Substance: GABAPENTIN
     Dosage: 300 MG, TID (POST OPERATION)
     Route: 065
  6. EPINEPHRINE W/LIDOCAINE [Concomitant]
     Active Substance: EPINEPHRINE\LIDOCAINE
     Dosage: SENSORY LEVEL WAS ASSESSED AFTER AN ADDITIONAL 2 ML OF THE TEST DOSE
     Route: 008
  7. KETAMINE [Concomitant]
     Active Substance: KETAMINE
     Indication: PERIOPERATIVE ANALGESIA
     Dosage: UNK  (MULTIMODAL PERIOPERATIVE REGIMEN)
     Route: 065
  8. GABAPENTIN. [Concomitant]
     Active Substance: GABAPENTIN
     Indication: PROCEDURAL PAIN
     Dosage: 600 MG (ON THE DAY OF SURGERY)
     Route: 065
  9. ALPRAZOLAM. [Concomitant]
     Active Substance: ALPRAZOLAM
     Indication: ANAESTHESIA
     Dosage: 0.5 MG, TID
     Route: 065
  10. ROPIVACAINE. [Concomitant]
     Active Substance: ROPIVACAINE HYDROCHLORIDE
     Dosage: POSTOPERATIVELY THE EPIDURAL INFUSION (ROPIVACAINE 0.2%) WAS INFUSED AT 6 ML/HR
     Route: 008
  11. ETOMIDATE. [Concomitant]
     Active Substance: ETOMIDATE
     Indication: ANAESTHESIA
     Dosage: UNK
     Route: 065
  12. MIDAZOLAM HYDROCHLORIDE. [Concomitant]
     Active Substance: MIDAZOLAM HYDROCHLORIDE
     Indication: ANAESTHESIA
     Dosage: UNK
     Route: 065
  13. LAMOTRIGINE. [Concomitant]
     Active Substance: LAMOTRIGINE
     Indication: PRODUCT USED FOR UNKNOWN INDICATION
     Dosage: 50 MG DAILY
     Route: 065
  14. DEXMEDETOMIDINE. [Concomitant]
     Active Substance: DEXMEDETOMIDINE
     Indication: PERIOPERATIVE ANALGESIA
     Dosage: UNK
     Route: 065
  15. DEXMEDETOMIDINE. [Concomitant]
     Active Substance: DEXMEDETOMIDINE
     Indication: ANAESTHESIA
     Dosage: (1 ?G/KG/HOUR) POSTOPERATIVELY
     Route: 008
  16. GABAPENTIN. [Concomitant]
     Active Substance: GABAPENTIN
     Indication: PERIOPERATIVE ANALGESIA
     Dosage: UNK
     Route: 065
  17. ROPIVACAINE. [Concomitant]
     Active Substance: ROPIVACAINE HYDROCHLORIDE
     Dosage: INTERMITTENT BOLUS DOSING OF THE EPIDURAL CATHETER WITH 0.5% ROPIVACAINE
     Route: 008
  18. ROCURONIUM [Concomitant]
     Active Substance: ROCURONIUM BROMIDE
     Indication: ENDOTRACHEAL INTUBATION
     Dosage: UNK
     Route: 065
  19. SEVOFLURANE. [Concomitant]
     Active Substance: SEVOFLURANE
     Indication: ANAESTHESIA
     Dosage: UNK (2 TO 3%) IN AIR AND OXYGEN WITH INTERMITTENT BOLUS DOSING OF EPIDURAL CATHETER WITH ROPIVACAINE
     Route: 065
  20. BUPRENORPHINE/NALOXONE [Suspect]
     Active Substance: BUPRENORPHINE\NALOXONE
     Indication: DRUG ABUSE
     Dosage: 16MG, DAILY
     Route: 065
  21. KETOROLAC [Concomitant]
     Active Substance: KETOROLAC TROMETHAMINE
     Indication: PERIOPERATIVE ANALGESIA
     Dosage: UNK (MULTIMODAL PERIOPERATIVE REGIMEN)
     Route: 065
  22. KETOROLAC [Concomitant]
     Active Substance: KETOROLAC TROMETHAMINE
     Indication: PROCEDURAL PAIN
     Dosage: 30 MG, EVERY 6HRS
     Route: 042
  23. BUPRENORPHINE/NALOXONE [Suspect]
     Active Substance: BUPRENORPHINE\NALOXONE
     Indication: PROCEDURAL PAIN
     Dosage: 16MG, DAILY AND SUPPLEMENTED BY AN ADDITIONAL 8 MG DOSE AT NIGHT
     Route: 065
  24. GABAPENTIN. [Concomitant]
     Active Substance: GABAPENTIN
     Dosage: INCREASED TO 400 MG TID
     Route: 065

REACTIONS (7)
  - Procedural pain [Recovering/Resolving]
  - Bipolar disorder [Unknown]
  - Pulmonary valve incompetence [Unknown]
  - Drug abuse [Recovered/Resolved]
  - Inappropriate schedule of product administration [Not Recovered/Not Resolved]
  - Hepatitis C [Unknown]
  - Anxiety [Unknown]
